FAERS Safety Report 6879181-6 (Version None)
Quarter: 2010Q3

REPORT INFORMATION
  Report Type: 
  Country: None (occurrence: None)
  Receive Date: 20100728
  Receipt Date: 20100720
  Transmission Date: 20110219
  Serious: Yes (Other)
  Sender: FDA-Public Use
  Company Number: US-PERRIGO-10US011438

PATIENT
  Sex: Male
  Weight: 90.703 kg

DRUGS (3)
  1. OXYMETAZOLINE HYDROCHLORIDE EXTRA MOIST 0.05% 065 [Suspect]
     Indication: PRODUCT USED FOR UNKNOWN INDICATION
     Dosage: QD FOR 3 WEEKS EACH MONTH
     Route: 045
     Dates: start: 20090101
  2. CHOLCHICINE [Concomitant]
     Indication: JOINT SWELLING
     Dosage: SIX TABLETS DAILY AS NEEDED
     Route: 048
     Dates: start: 20100623, end: 20100628
  3. TERAZOSIN HCL [Concomitant]
     Indication: PROSTATOMEGALY
     Dosage: 1 TABLET DAILY IN PM
     Route: 048
     Dates: start: 20090719

REACTIONS (5)
  - AGEUSIA [None]
  - ANOSMIA [None]
  - DYSGEUSIA [None]
  - INCORRECT DRUG ADMINISTRATION DURATION [None]
  - PAROSMIA [None]
